FAERS Safety Report 19689211 (Version 2)
Quarter: 2021Q3

REPORT INFORMATION
  Report Type: Spontaneous
  Country: IN (occurrence: IN)
  Receive Date: 20210812
  Receipt Date: 20210827
  Transmission Date: 20211014
  Serious: Yes (Other)
  Sender: FDA-Public Use
  Company Number: IN-SUN PHARMACEUTICAL INDUSTRIES LTD-2021R1-307104

PATIENT
  Sex: Female
  Weight: 3.2 kg

DRUGS (5)
  1. PROPRANOLOL [Suspect]
     Active Substance: PROPRANOLOL HYDROCHLORIDE
     Indication: NEONATAL TACHYARRHYTHMIA
     Dosage: 0.5 MILLIGRAM/KILOGRAM, DAILY
     Route: 048
  2. SOTALOL. [Suspect]
     Active Substance: SOTALOL
     Indication: NEONATAL TACHYARRHYTHMIA
     Dosage: 1 MILLIGRAM/KILOGRAM/DOSE
     Route: 048
     Dates: start: 20190403
  3. AMIODARONE [Suspect]
     Active Substance: AMIODARONE
     Dosage: UNK (TAPERED)
     Route: 042
  4. AMIODARONE [Suspect]
     Active Substance: AMIODARONE
     Indication: NEONATAL TACHYARRHYTHMIA
     Dosage: 5 MILLIGRAM/KILOGRAM
     Route: 042
  5. AMIODARONE [Suspect]
     Active Substance: AMIODARONE
     Dosage: 5 MICROGRAM/KILOGRAM/MIN
     Route: 042

REACTIONS (2)
  - Neonatal bradyarrhythmia [Recovering/Resolving]
  - Disease recurrence [Unknown]

NARRATIVE: CASE EVENT DATE: 20190403
